FAERS Safety Report 4352589-9 (Version None)
Quarter: 2004Q2

REPORT INFORMATION
  Report Type: 
  Country: None (occurrence: None)
  Receive Date: 20040420
  Receipt Date: 20040308
  Transmission Date: 20050107
  Serious: No
  Sender: FDA-Public Use
  Company Number: 2004204624US

PATIENT
  Age: 47 Year
  Sex: Male

DRUGS (1)
  1. SOMAVERT [Suspect]
     Dosage: SEE IMAGE
     Route: 058
     Dates: start: 20030605

REACTIONS (2)
  - FATIGUE [None]
  - INJECTION SITE REACTION [None]
